FAERS Safety Report 21531728 (Version 1)
Quarter: 2022Q4

REPORT INFORMATION
  Report Type: Spontaneous
  Country: US (occurrence: None)
  Receive Date: 20221031
  Receipt Date: 20221031
  Transmission Date: 20230113
  Serious: No
  Sender: FDA-Public Use
  Company Number: None

PATIENT
  Sex: Female
  Weight: 59.87 kg

DRUGS (16)
  1. VERZENIO [Suspect]
     Active Substance: ABEMACICLIB
     Indication: Breast cancer female
     Dosage: 50MG TWICE DAILY ORAL?
     Route: 048
  2. IMODIUM A-D [Concomitant]
     Active Substance: LOPERAMIDE HYDROCHLORIDE
  3. LEVOTHYROXINE [Concomitant]
     Active Substance: LEVOTHYROXINE
  4. LORAZEPAM [Concomitant]
     Active Substance: LORAZEPAM
  5. MEDROL [Concomitant]
     Active Substance: METHYLPREDNISOLONE
  6. ONDANSETRON [Concomitant]
     Active Substance: ONDANSETRON
  7. PROLIA [Concomitant]
     Active Substance: DENOSUMAB
  8. PROTONIX [Concomitant]
     Active Substance: PANTOPRAZOLE SODIUM
  9. SERTRALINE [Concomitant]
     Active Substance: SERTRALINE HYDROCHLORIDE
  10. ALBUTEROL SULFATE [Concomitant]
     Active Substance: ALBUTEROL SULFATE
  11. AMLODIPINE [Concomitant]
     Active Substance: AMLODIPINE BESYLATE
  12. BENEFIBER [Concomitant]
     Active Substance: STARCH, WHEAT
  13. BIOTIN [Concomitant]
     Active Substance: BIOTIN
  14. CALCIUM CARBONATE +D [Concomitant]
  15. FLONASE [Concomitant]
     Active Substance: FLUTICASONE PROPIONATE
  16. FULVESTRANT [Concomitant]
     Active Substance: FULVESTRANT

REACTIONS (1)
  - Hospice care [None]
